FAERS Safety Report 26150804 (Version 1)
Quarter: 2025Q4

REPORT INFORMATION
  Report Type: Spontaneous
  Country: US (occurrence: None)
  Receive Date: 20251211
  Receipt Date: 20251211
  Transmission Date: 20260117
  Serious: Yes (Hospitalization, Other)
  Sender: FDA-CTU
  Company Number: None

PATIENT
  Age: 39 Year
  Sex: Female
  Weight: 64.5 kg

DRUGS (5)
  1. CLOZAPINE [Suspect]
     Active Substance: CLOZAPINE
     Indication: Schizophrenia
     Dosage: FREQUENCY : DAILY;
     Route: 048
     Dates: start: 20250916, end: 20251008
  2. Clozapine 50mg po AM + 200mg qhs [Concomitant]
     Dates: end: 20251008
  3. Benztropine 1mg po qd [Concomitant]
     Dosage: FREQUENCY : DAILY;
     Route: 048
  4. Gabapentin 600mg po TID [Concomitant]
     Dosage: FREQUENCY : 3 TIMES A DAY;
     Route: 048
  5. Lithium 300mg po BID [Concomitant]
     Dosage: FREQUENCY : TWICE A DAY;
     Route: 048

REACTIONS (6)
  - Somnolence [None]
  - Heart rate increased [None]
  - Disturbance in attention [None]
  - C-reactive protein increased [None]
  - Pleural effusion [None]
  - Gastrooesophageal reflux disease [None]

NARRATIVE: CASE EVENT DATE: 20250919
